APPROVED DRUG PRODUCT: OMEPRAZOLE AND SODIUM BICARBONATE
Active Ingredient: OMEPRAZOLE; SODIUM BICARBONATE
Strength: 20MG/PACKET;1.68GM/PACKET
Dosage Form/Route: FOR SUSPENSION;ORAL
Application: A217784 | Product #001
Applicant: DR REDDYS LABORATORIES LTD
Approved: May 9, 2024 | RLD: No | RS: No | Type: OTC